FAERS Safety Report 6288691-4 (Version None)
Quarter: 2009Q3

REPORT INFORMATION
  Report Type: 
  Country: None (occurrence: None)
  Receive Date: 20090729
  Receipt Date: 20090716
  Transmission Date: 20100115
  Serious: Yes (Other)
  Sender: FDA-Public Use
  Company Number: BE-GENENTECH-265137

PATIENT
  Sex: Female

DRUGS (7)
  1. AVASTIN [Suspect]
     Indication: COLORECTAL CANCER
     Dosage: UNK MG/KG, UNK
     Route: 065
     Dates: start: 20050101, end: 20060601
  2. AVASTIN [Suspect]
     Dosage: 5 MG/KG, UNK
  3. FLUOROURACIL [Concomitant]
     Indication: COLORECTAL CANCER
     Dosage: UNK
     Dates: start: 20050101, end: 20060601
  4. FOLINIC ACID [Concomitant]
     Indication: COLORECTAL CANCER
     Dosage: UNK
     Dates: start: 20050101, end: 20060601
  5. OXALIPLATIN [Concomitant]
     Indication: COLORECTAL CANCER
     Dosage: UNK
     Dates: start: 20050101, end: 20060601
  6. EMCONCOR [Concomitant]
     Indication: HYPERTENSION
     Dosage: UNK
  7. ASPIRIN [Concomitant]
     Indication: THROMBOSIS PROPHYLAXIS
     Dosage: UNK

REACTIONS (5)
  - ANGINA PECTORIS [None]
  - CYANOSIS [None]
  - OEDEMA PERIPHERAL [None]
  - PULMONARY EMBOLISM [None]
  - TINNITUS [None]
